FAERS Safety Report 23631676 (Version 1)
Quarter: 2024Q1

REPORT INFORMATION
  Report Type: Spontaneous
  Country: DK (occurrence: DK)
  Receive Date: 20240314
  Receipt Date: 20240314
  Transmission Date: 20240410
  Serious: Yes (Other)
  Sender: FDA-Public Use
  Company Number: None

PATIENT
  Age: 40 Year
  Sex: Female
  Weight: 54 kg

DRUGS (2)
  1. ALPHAGAN P [Suspect]
     Active Substance: BRIMONIDINE TARTRATE
     Indication: Glaucoma
     Dosage: DOSAGE: 1 DROP IN BOTH EYES. UNKNOWN IF TAKEN FROM DEC2022 TO 20JAN2023. ?STRENGTH: 2 MG/ML
     Route: 047
     Dates: start: 2022, end: 20230425
  2. AZOPT [Suspect]
     Active Substance: BRINZOLAMIDE
     Indication: Ocular hypertension
     Dosage: STRENGTH: 10 MG/ML?DOSAGE: 1 DROP IN BOTH EYES.
     Route: 065
     Dates: start: 20230425

REACTIONS (4)
  - Placental disorder [Recovered/Resolved]
  - Placental insufficiency [Recovered/Resolved]
  - Maternal exposure during pregnancy [Unknown]
  - Foetal death [Not Recovered/Not Resolved]

NARRATIVE: CASE EVENT DATE: 20230101
